FAERS Safety Report 16450474 (Version 1)
Quarter: 2019Q2

REPORT INFORMATION
  Report Type: Spontaneous
  Country: US (occurrence: US)
  Receive Date: 20190509
  Receipt Date: 20190509
  Transmission Date: 20190711
  Serious: Yes (Hospitalization)
  Sender: FDA-Public Use
  Company Number: None

PATIENT
  Age: 79 Year
  Sex: Female
  Weight: 58.1 kg

DRUGS (1)
  1. NIVOLUMAB 240MG [Suspect]
     Active Substance: NIVOLUMAB
     Indication: GASTROINTESTINAL STROMAL TUMOUR
     Route: 042
     Dates: start: 20170712, end: 20180416

REACTIONS (6)
  - Hyperkalaemia [None]
  - Type 1 diabetes mellitus [None]
  - Hyponatraemia [None]
  - Diabetic ketoacidosis [None]
  - Metabolic acidosis [None]
  - Polyuria [None]

NARRATIVE: CASE EVENT DATE: 20180423
